FAERS Safety Report 18490133 (Version 1)
Quarter: 2020Q4

REPORT INFORMATION
  Report Type: Spontaneous
  Country: ER (occurrence: DE)
  Receive Date: 20201111
  Receipt Date: 20201111
  Transmission Date: 20210114
  Serious: Yes (Other)
  Sender: FDA-Public Use
  Company Number: NVSC2020DE296777

PATIENT
  Sex: Male

DRUGS (8)
  1. VALSACOR [Concomitant]
     Active Substance: VALSARTAN
     Dosage: 1 DF, QD (160 MG/12.5 MG) MORNING
     Route: 065
     Dates: start: 201606, end: 201609
  2. VALSACOR [Concomitant]
     Active Substance: VALSARTAN
     Indication: HYPERTENSION
     Dosage: 1 DF, QD (160 MG/12.5 MG) MORNING
     Route: 065
     Dates: start: 20141209, end: 201501
  3. VALSACOR [Concomitant]
     Active Substance: VALSARTAN
     Dosage: 1 DF, QD (160 MG/12.5 MG) MORNING
     Route: 065
     Dates: start: 201612, end: 201705
  4. VALSARTAN ACTAVIS COMP [Concomitant]
     Active Substance: HYDROCHLOROTHIAZIDE\VALSARTAN
     Indication: HYPERTENSION
     Dosage: 1 DF, QD (160 MG/12.5 MG) MORNING
     Route: 065
     Dates: start: 201501, end: 201606
  5. VALSARTAN ACTAVIS COMP [Concomitant]
     Active Substance: HYDROCHLOROTHIAZIDE\VALSARTAN
     Dosage: 1 DF, QD (160 MG/12.5 MG) MORNING
     Route: 065
     Dates: end: 20180807
  6. VALSARTAN - 1 A PHARMA PLUS [Suspect]
     Active Substance: HYDROCHLOROTHIAZIDE\VALSARTAN
     Indication: HYPERTENSION
     Dosage: 1 DF, QD (160 MG/12.5 MG) MORNING
     Route: 065
     Dates: start: 20170531, end: 20180807
  7. VALSARTAN - 1 A PHARMA PLUS [Suspect]
     Active Substance: HYDROCHLOROTHIAZIDE\VALSARTAN
     Dosage: 1 DF, QD (160 MG/12.5 MG) MORNING
     Route: 065
     Dates: start: 20170531, end: 20180807
  8. VALSARTAN ACTAVIS COMP [Concomitant]
     Active Substance: HYDROCHLOROTHIAZIDE\VALSARTAN
     Dosage: 1 DF, QD (160 MG/12.5 MG) MORNING
     Route: 065
     Dates: start: 201609, end: 201612

REACTIONS (7)
  - Emotional distress [Unknown]
  - Staphylococcal infection [Unknown]
  - Illness [Unknown]
  - Dizziness [Unknown]
  - Headache [Unknown]
  - Sleep disorder [Unknown]
  - Anxiety disorder [Unknown]

NARRATIVE: CASE EVENT DATE: 2017
